FAERS Safety Report 7201253-7 (Version None)
Quarter: 2010Q4

REPORT INFORMATION
  Report Type: 
  Country: None (occurrence: None)
  Receive Date: 20101227
  Receipt Date: 20101227
  Transmission Date: 20110411
  Serious: Yes (Disabling)
  Sender: FDA-Public Use
  Company Number: None

PATIENT
  Age: 48 Year
  Sex: Female
  Weight: 84.369 kg

DRUGS (1)
  1. TRANSDERM SCOP [Suspect]
     Indication: POSTOPERATIVE CARE
     Dosage: 1 PATCH - 15 MG 1 PATCH FOR 3 DAYS TRANSDERMAL
     Route: 062
     Dates: start: 20101109, end: 20101224

REACTIONS (3)
  - MIGRAINE [None]
  - NAUSEA [None]
  - WITHDRAWAL SYNDROME [None]
